FAERS Safety Report 24216645 (Version 1)
Quarter: 2024Q3

REPORT INFORMATION
  Report Type: Spontaneous
  Country: GB (occurrence: GB)
  Receive Date: 20240816
  Receipt Date: 20240816
  Transmission Date: 20241017
  Serious: Yes (Hospitalization)
  Sender: Steriscience PTE
  Company Number: None

PATIENT
  Age: 54 Year
  Sex: Female

DRUGS (6)
  1. PIPERACILLIN SODIUM\TAZOBACTAM SODIUM [Suspect]
     Active Substance: PIPERACILLIN SODIUM\TAZOBACTAM SODIUM
     Indication: Neutropenic sepsis
     Dosage: UNK
     Route: 065
  2. MEROPENEM [Suspect]
     Active Substance: MEROPENEM
     Indication: Neutropenic sepsis
     Dosage: UNK
     Route: 065
  3. AMIKACIN [Suspect]
     Active Substance: AMIKACIN
     Indication: Neutropenic sepsis
     Dosage: UNK
     Route: 065
  4. COTRIMOXAZOLE [Suspect]
     Active Substance: SULFAMETHOXAZOLE\TRIMETHOPRIM
     Indication: Hairy cell leukaemia
     Dosage: UNK
     Route: 065
  5. ALLOPURINOL [Concomitant]
     Active Substance: ALLOPURINOL
     Indication: Hairy cell leukaemia
     Dosage: UNK
     Route: 065
  6. DOMPERIDONE [Concomitant]
     Active Substance: DOMPERIDONE
     Indication: Hairy cell leukaemia
     Dosage: UNK
     Route: 065

REACTIONS (3)
  - Multiple drug hypersensitivity [None]
  - Rash maculo-papular [None]
  - Type IV hypersensitivity reaction [None]
